FAERS Safety Report 9684009 (Version 3)
Quarter: 2016Q1

REPORT INFORMATION
  Report Type: Spontaneous
  Country: DE (occurrence: DE)
  Receive Date: 20131112
  Receipt Date: 20160202
  Transmission Date: 20160526
  Serious: Yes (Other)
  Sender: FDA-Public Use
  Company Number: PHHY2013DE128269

PATIENT
  Sex: Female

DRUGS (1)
  1. LETROZOLE. [Suspect]
     Active Substance: LETROZOLE
     Indication: BREAST CANCER METASTATIC
     Dosage: UNK
     Route: 065
     Dates: start: 201201

REACTIONS (6)
  - Malignant neoplasm progression [Unknown]
  - Pericardial effusion [Recovered/Resolved]
  - Breast cancer metastatic [Unknown]
  - Metastases to bone [Unknown]
  - Metastases to skin [Unknown]
  - Stomatitis [Unknown]

NARRATIVE: CASE EVENT DATE: 20120924
